FAERS Safety Report 17907417 (Version 1)
Quarter: 2020Q2

REPORT INFORMATION
  Report Type: Spontaneous
  Country: US (occurrence: US)
  Receive Date: 20200617
  Receipt Date: 20200617
  Transmission Date: 20200714
  Serious: Yes (Hospitalization)
  Sender: FDA-Public Use
  Company Number: None

PATIENT
  Age: 62 Year
  Sex: Female

DRUGS (4)
  1. TRIAMCINOLONE CREAM [Concomitant]
     Active Substance: TRIAMCINOLONE
  2. FASLODEX [Concomitant]
     Active Substance: FULVESTRANT
  3. CAPECITABINE. [Suspect]
     Active Substance: CAPECITABINE
     Indication: BREAST CANCER FEMALE
     Dosage: ?          OTHER FREQUENCY:BID WEEKLY QOW;?
     Route: 048
     Dates: start: 20190722
  4. SYNTHROID [Concomitant]
     Active Substance: LEVOTHYROXINE SODIUM

REACTIONS (2)
  - Therapy interrupted [None]
  - Pneumonia [None]

NARRATIVE: CASE EVENT DATE: 20200616
